FAERS Safety Report 7947328-6 (Version None)
Quarter: 2011Q4

REPORT INFORMATION
  Report Type: 
  Country: None (occurrence: None)
  Receive Date: 20111130
  Receipt Date: 20111121
  Transmission Date: 20120403
  Serious: Yes (Other)
  Sender: FDA-Public Use
  Company Number: GB-AMGEN-GBRSP2011062287

PATIENT
  Age: 19 Year
  Sex: Female
  Weight: 60 kg

DRUGS (4)
  1. IRON [Concomitant]
     Indication: PRENATAL CARE
     Dosage: 200 MG, BID
  2. VITAMIN D [Concomitant]
     Indication: PRENATAL CARE
     Dosage: 10 UG, UNK
  3. ENBREL [Suspect]
     Indication: PSORIASIS
     Dosage: 50 MG, WEEKLY
     Route: 058
     Dates: start: 20090501, end: 20110301
  4. FOLIC ACID [Concomitant]
     Indication: PRENATAL CARE
     Dosage: 400 UG, UNK

REACTIONS (1)
  - VAGINAL HAEMORRHAGE [None]
